FAERS Safety Report 15671649 (Version 1)
Quarter: 2018Q4

REPORT INFORMATION
  Report Type: Spontaneous
  Country: GB (occurrence: CZ)
  Receive Date: 20181129
  Receipt Date: 20181129
  Transmission Date: 20190205
  Serious: Yes (Other)
  Sender: FDA-Public Use
  Company Number: CZ-FRESENIUS KABI-FK201811961

PATIENT
  Age: 57 Year
  Sex: Male

DRUGS (4)
  1. CARBOPLATIN (MANUFACTURER UNKNOWN) [Suspect]
     Active Substance: CARBOPLATIN
     Indication: LUNG ADENOCARCINOMA
     Dosage: AUC 6
     Route: 042
     Dates: start: 20150916
  2. VINORELBINE [Suspect]
     Active Substance: VINORELBINE\VINORELBINE TARTRATE
     Indication: LUNG ADENOCARCINOMA
     Dosage: ON DAY 1 AND DAY 8
     Route: 042
  3. PACLITAXEL (MANUFACTURER UNKNOWN) [Suspect]
     Active Substance: PACLITAXEL
     Indication: LUNG ADENOCARCINOMA
     Route: 042
     Dates: start: 20150916
  4. BEVACIZUMAB. [Suspect]
     Active Substance: BEVACIZUMAB
     Indication: LUNG ADENOCARCINOMA
     Route: 042
     Dates: start: 20150916, end: 20171031

REACTIONS (8)
  - Radiation pneumonitis [Unknown]
  - Abdominal pain upper [Unknown]
  - Neuropathy peripheral [Unknown]
  - Neutropenia [Unknown]
  - Arthralgia [Unknown]
  - Fatigue [Unknown]
  - Dyspepsia [Unknown]
  - Pulmonary fibrosis [Unknown]

NARRATIVE: CASE EVENT DATE: 20160921
